FAERS Safety Report 5593874-2 (Version None)
Quarter: 2008Q1

REPORT INFORMATION
  Report Type: 
  Country: None (occurrence: None)
  Receive Date: 20080116
  Receipt Date: 20080109
  Transmission Date: 20080703
  Serious: Yes (Other)
  Sender: FDA-Public Use
  Company Number: US-ROXANE LABORATORIES, INC-2008-BP-00357RO

PATIENT
  Age: 52 Year
  Sex: Male

DRUGS (8)
  1. PREDNISONE TAB [Suspect]
     Indication: IMMUNOSUPPRESSION
  2. PREDNISONE TAB [Suspect]
  3. TACROLIMUS [Suspect]
     Indication: IMMUNOSUPPRESSION
  4. MYCOPHENOLATE MOFETIL [Suspect]
     Indication: IMMUNOSUPPRESSION
  5. AMPHOTERICIN B [Concomitant]
     Indication: CRYPTOCOCCAL CUTANEOUS INFECTION
  6. FLUCONAZOLE [Concomitant]
     Indication: CRYPTOCOCCAL CUTANEOUS INFECTION
  7. VORICONAZOLE [Concomitant]
     Indication: CRYPTOCOCCAL CUTANEOUS INFECTION
     Route: 048
  8. 5-FLUCYTOSINE [Concomitant]
     Indication: CRYPTOCOCCAL CUTANEOUS INFECTION

REACTIONS (3)
  - IMMUNE RECONSTITUTION SYNDROME [None]
  - RENAL FAILURE [None]
  - SUBCUTANEOUS ABSCESS [None]
